FAERS Safety Report 5894479-6 (Version None)
Quarter: 2008Q3

REPORT INFORMATION
  Report Type: 
  Country: None (occurrence: None)
  Receive Date: 20080923
  Receipt Date: 20080923
  Transmission Date: 20090109
  Serious: Yes (Hospitalization)
  Sender: FDA-Public Use
  Company Number: None

PATIENT
  Sex: Male
  Weight: 65.9 kg

DRUGS (4)
  1. EXJADE [Suspect]
     Indication: PORPHYRIA NON-ACUTE
     Dosage: 500 MG PO QD
  2. LISINOPRIL [Concomitant]
  3. METOPROLOL TARTRATE [Concomitant]
  4. NORCO [Concomitant]

REACTIONS (5)
  - BACK PAIN [None]
  - HYPERKALAEMIA [None]
  - HYPONATRAEMIA [None]
  - HYPOVOLAEMIA [None]
  - PAIN IN EXTREMITY [None]
